FAERS Safety Report 14551718 (Version 2)
Quarter: 2018Q2

REPORT INFORMATION
  Report Type: Spontaneous
  Country: US (occurrence: US)
  Receive Date: 20180220
  Receipt Date: 20180625
  Transmission Date: 20180711
  Serious: Yes (Death, Other)
  Sender: FDA-Public Use
  Company Number: US-ASTRAZENECA-2018SE21204

PATIENT
  Age: 26277 Day
  Sex: Male
  Weight: 95.3 kg

DRUGS (36)
  1. AMOX-CLAV [Concomitant]
     Active Substance: AMOXICILLIN\CLAVULANATE POTASSIUM
     Indication: ANTIBIOTIC PROPHYLAXIS
     Dosage: 875-125 MG
     Route: 065
     Dates: start: 2008, end: 2010
  2. CIPROFLOXACIN HYDROCHLORIDE. [Concomitant]
     Active Substance: CIPROFLOXACIN HYDROCHLORIDE
     Indication: ANTIBIOTIC PROPHYLAXIS
     Dosage: 500.0MG UNKNOWN
     Route: 065
     Dates: start: 2007, end: 2008
  3. CIPROFLOXACIN HYDROCHLORIDE. [Concomitant]
     Active Substance: CIPROFLOXACIN HYDROCHLORIDE
     Indication: ANTIBIOTIC PROPHYLAXIS
     Dosage: 500.0MG UNKNOWN
     Route: 065
     Dates: start: 2011
  4. FENOFIBRATE. [Concomitant]
     Active Substance: FENOFIBRATE
     Indication: BLOOD CHOLESTEROL
     Dosage: 134.0MG UNKNOWN
     Route: 065
     Dates: start: 2006
  5. FLOMAX [Concomitant]
     Active Substance: TAMSULOSIN HYDROCHLORIDE
     Indication: MUSCLE RELAXANT THERAPY
     Dosage: 0.4MG UNKNOWN
     Route: 065
     Dates: start: 2006
  6. NEXIUM [Suspect]
     Active Substance: ESOMEPRAZOLE MAGNESIUM
     Indication: GASTROOESOPHAGEAL REFLUX DISEASE
     Route: 048
     Dates: start: 2003, end: 2012
  7. ADVAIR HFA [Concomitant]
     Active Substance: FLUTICASONE PROPIONATE\SALMETEROL XINAFOATE
     Indication: CHRONIC OBSTRUCTIVE PULMONARY DISEASE
     Route: 065
     Dates: start: 2007
  8. ANUCORT-HC [Concomitant]
     Active Substance: HYDROCORTISONE ACETATE
     Indication: INFLAMMATION
     Dosage: 25.0MG UNKNOWN
     Route: 065
     Dates: start: 2006
  9. CHLORHEXIDINE [Concomitant]
     Active Substance: CHLORHEXIDINE
     Indication: WOUND TREATMENT
     Dosage: 0.12 %
     Route: 065
     Dates: start: 2006, end: 2010
  10. CLONAZEPAM. [Concomitant]
     Active Substance: CLONAZEPAM
     Indication: SEIZURE
     Dosage: 0.5MG UNKNOWN
     Route: 065
     Dates: start: 2004, end: 2017
  11. CYCLOBENZAPRINE. [Concomitant]
     Active Substance: CYCLOBENZAPRINE
     Indication: MUSCLE RELAXANT THERAPY
     Dosage: 10.0MG UNKNOWN
     Route: 065
     Dates: start: 2008
  12. DOXYCYCLINE HYCLATE. [Concomitant]
     Active Substance: DOXYCYCLINE HYCLATE
     Indication: ANTIBIOTIC PROPHYLAXIS
     Dosage: 100.0MG UNKNOWN
     Route: 065
     Dates: start: 2006
  13. ELIQUIS [Concomitant]
     Active Substance: APIXABAN
     Indication: ANTIPLATELET THERAPY
     Dosage: 2.5MG UNKNOWN
     Route: 065
     Dates: start: 2016
  14. PEPCID [Concomitant]
     Active Substance: FAMOTIDINE
     Route: 065
  15. NEXIUM [Suspect]
     Active Substance: ESOMEPRAZOLE MAGNESIUM
     Indication: GASTROOESOPHAGEAL REFLUX DISEASE
     Dosage: 40.0MG UNKNOWN
     Route: 048
  16. BENZONATATE. [Concomitant]
     Active Substance: BENZONATATE
     Indication: COUGH
     Dosage: 200.0MG UNKNOWN
     Route: 065
     Dates: start: 2006
  17. FELODIPINE. [Concomitant]
     Active Substance: FELODIPINE
     Indication: BLOOD CALCIUM
     Dosage: 10.0MG UNKNOWN
     Route: 065
     Dates: start: 2006
  18. FLUOROURACIL. [Concomitant]
     Active Substance: FLUOROURACIL
     Indication: SKIN CANCER
     Route: 065
     Dates: start: 2012
  19. FOSINOPRIL [Concomitant]
     Active Substance: FOSINOPRIL
     Indication: BLOOD PRESSURE MEASUREMENT
     Dosage: 20.0MG UNKNOWN
     Route: 065
     Dates: start: 2005, end: 2016
  20. CELEBREX [Concomitant]
     Active Substance: CELECOXIB
     Indication: ARTHRITIS
     Dosage: 200.0MG UNKNOWN
     Route: 065
     Dates: start: 2014
  21. DICLOFENAC SODIUM. [Concomitant]
     Active Substance: DICLOFENAC SODIUM
     Indication: SWELLING
     Dosage: 1 %
     Route: 065
     Dates: start: 2016
  22. DIFLUNISAL. [Concomitant]
     Active Substance: DIFLUNISAL
     Indication: ARTHRITIS
     Dosage: 500.0MG UNKNOWN
     Route: 065
     Dates: start: 2008
  23. DEXILANT [Suspect]
     Active Substance: DEXLANSOPRAZOLE
     Indication: GASTROOESOPHAGEAL REFLUX DISEASE
     Route: 065
     Dates: start: 2012, end: 2017
  24. CIALIS [Concomitant]
     Active Substance: TADALAFIL
     Indication: ERECTILE DYSFUNCTION
     Route: 065
     Dates: start: 2011
  25. ENDOCET [Concomitant]
     Active Substance: ACETAMINOPHEN\OXYCODONE HYDROCHLORIDE
     Indication: PAIN
     Route: 065
     Dates: start: 2014
  26. FUROSEMIDE. [Concomitant]
     Active Substance: FUROSEMIDE
     Indication: BLOOD PRESSURE MEASUREMENT
     Dosage: 20.0MG UNKNOWN
     Route: 065
     Dates: start: 2005, end: 2012
  27. HYDROCHLOROTHIAZIDE. [Concomitant]
     Active Substance: HYDROCHLOROTHIAZIDE
     Indication: BLOOD PRESSURE MEASUREMENT
     Dosage: 25.0MG UNKNOWN
     Route: 065
     Dates: start: 2005
  28. HYDROCODONE-ACETAMINOPHEN [Concomitant]
     Active Substance: ACETAMINOPHEN\HYDROCODONE
     Indication: PAIN
     Dosage: 10-650 TABS
     Route: 065
     Dates: start: 2010
  29. ZANTAC 300 [Concomitant]
     Route: 065
  30. CEPHALEXIN. [Concomitant]
     Active Substance: CEPHALEXIN
     Indication: ARTHRITIS
     Dosage: 200.0MG UNKNOWN
     Route: 065
     Dates: start: 2016
  31. NEXIUM [Suspect]
     Active Substance: ESOMEPRAZOLE MAGNESIUM
     Indication: GASTROOESOPHAGEAL REFLUX DISEASE
     Route: 048
     Dates: start: 2004, end: 2012
  32. CLOPIDOGREL [Concomitant]
     Active Substance: CLOPIDOGREL BISULFATE
     Indication: ANTIPLATELET THERAPY
     Dosage: 500.0MG UNKNOWN
     Route: 065
     Dates: start: 2013, end: 2016
  33. FLONASE [Concomitant]
     Active Substance: FLUTICASONE PROPIONATE
     Indication: INFLAMMATION
     Dosage: 0.05% UNKNOWN
     Route: 065
     Dates: start: 2008, end: 2011
  34. LIPITOR [Concomitant]
     Active Substance: ATORVASTATIN CALCIUM
     Indication: BLOOD CHOLESTEROL
     Dosage: 20.0MG UNKNOWN
     Route: 065
     Dates: start: 2004, end: 2006
  35. FISH OIL [Concomitant]
     Active Substance: FISH OIL
     Indication: CARDIOVASCULAR EVENT PROPHYLAXIS
     Route: 065
     Dates: start: 2008, end: 201804
  36. TYLENOL [Concomitant]
     Active Substance: ACETAMINOPHEN
     Indication: CARDIOVASCULAR EVENT PROPHYLAXIS
     Route: 065
     Dates: start: 2013, end: 201804

REACTIONS (3)
  - Death [Fatal]
  - Tubulointerstitial nephritis [Unknown]
  - Chronic kidney disease [Unknown]

NARRATIVE: CASE EVENT DATE: 20180414
